FAERS Safety Report 12338219 (Version 2)
Quarter: 2016Q2

REPORT INFORMATION
  Report Type: Spontaneous
  Country: BR (occurrence: BR)
  Receive Date: 20160505
  Receipt Date: 20160616
  Transmission Date: 20160815
  Serious: Yes (Hospitalization, Other)
  Sender: FDA-Public Use
  Company Number: BR-ASTELLAS-2016US017327

PATIENT
  Age: 71 Year
  Sex: Male

DRUGS (4)
  1. TARCEVA [Suspect]
     Active Substance: ERLOTINIB HYDROCHLORIDE
     Indication: MALIGNANT NEOPLASM OF PLEURA
     Route: 065
     Dates: start: 20140729
  2. TARCEVA [Suspect]
     Active Substance: ERLOTINIB HYDROCHLORIDE
     Indication: MALIGNANT MEDIASTINAL NEOPLASM
  3. TARCEVA [Suspect]
     Active Substance: ERLOTINIB HYDROCHLORIDE
     Indication: ADENOCARCINOMA
  4. TARCEVA [Suspect]
     Active Substance: ERLOTINIB HYDROCHLORIDE
     Indication: LUNG NEOPLASM MALIGNANT

REACTIONS (10)
  - Dementia [Unknown]
  - Nausea [Unknown]
  - Ageusia [Unknown]
  - Seizure [Unknown]
  - Coma [Unknown]
  - Paraneoplastic syndrome [Unknown]
  - Myasthenic syndrome [Unknown]
  - Weight decreased [Unknown]
  - Hepatic cancer [Unknown]
  - Mobility decreased [Unknown]

NARRATIVE: CASE EVENT DATE: 201509
